FAERS Safety Report 23306293 (Version 2)
Quarter: 2023Q4

REPORT INFORMATION
  Report Type: Spontaneous
  Country: TW (occurrence: TW)
  Receive Date: 20231218
  Receipt Date: 20231227
  Transmission Date: 20240110
  Serious: Yes (Hospitalization, Other)
  Sender: FDA-Public Use
  Company Number: TW-TAKEDA-2023TUS120393

PATIENT
  Age: 3 Year
  Sex: Male

DRUGS (8)
  1. HUMAN IMMUNOGLOBULIN G [Suspect]
     Active Substance: HUMAN IMMUNOGLOBULIN G
     Indication: Kawasaki^s disease
     Dosage: UNK
     Route: 042
  2. ASPIRIN [Concomitant]
     Active Substance: ASPIRIN
     Dosage: UNK
  3. METHYLPREDNISOLONE [Concomitant]
     Active Substance: METHYLPREDNISOLONE
     Dosage: UNK
  4. ANAKINRA [Concomitant]
     Active Substance: ANAKINRA
     Dosage: 4 MILLIGRAM/KILOGRAM
     Route: 058
  5. ANAKINRA [Concomitant]
     Active Substance: ANAKINRA
     Dosage: 10 MILLIGRAM/KILOGRAM
  6. ANAKINRA [Concomitant]
     Active Substance: ANAKINRA
     Dosage: 100 MILLIGRAM, QD
     Route: 065
  7. INFLIXIMAB [Concomitant]
     Active Substance: INFLIXIMAB
     Dosage: 10 MILLIGRAM/KILOGRAM
  8. ENOXAPARIN [Concomitant]
     Active Substance: ENOXAPARIN
     Dosage: UNK

REACTIONS (3)
  - Hypotension [Unknown]
  - Consciousness fluctuating [Unknown]
  - Drug ineffective [Unknown]
